FAERS Safety Report 10032350 (Version 2)
Quarter: 2014Q1

REPORT INFORMATION
  Report Type: Report from Study
  Country: BR (occurrence: BR)
  Receive Date: 20140324
  Receipt Date: 20140326
  Transmission Date: 20141002
  Serious: Yes (Death)
  Sender: FDA-Public Use
  Company Number: BR-ACTELION-A-CH2014-96509

PATIENT
  Age: 19 Year
  Sex: Female

DRUGS (6)
  1. TRACLEER [Suspect]
     Indication: PULMONARY ARTERIAL HYPERTENSION
     Dosage: 125 MG, BID
     Route: 048
  2. TRACLEER [Suspect]
     Dosage: 125 MG, QD
     Route: 048
     Dates: start: 20100120
  3. DIGOXIN [Concomitant]
  4. FUROSEMIDE [Concomitant]
  5. WARFARIN [Concomitant]
  6. SILDENAFIL [Concomitant]

REACTIONS (1)
  - Death [Fatal]
